FAERS Safety Report 24097020 (Version 1)
Quarter: 2024Q3

REPORT INFORMATION
  Report Type: Spontaneous
  Country: ES (occurrence: ES)
  Receive Date: 20240716
  Receipt Date: 20240716
  Transmission Date: 20241017
  Serious: Yes (Other)
  Sender: BAYER
  Company Number: ES-BAYER-2024A100478

PATIENT
  Sex: Male

DRUGS (1)
  1. FINERENONE [Suspect]
     Active Substance: FINERENONE

REACTIONS (2)
  - Haemoglobin decreased [None]
  - Haematochezia [None]
